FAERS Safety Report 24986564 (Version 1)
Quarter: 2025Q1

REPORT INFORMATION
  Report Type: Spontaneous
  Country: CN (occurrence: CN)
  Receive Date: 20250219
  Receipt Date: 20250219
  Transmission Date: 20250409
  Serious: Yes (Other)
  Sender: KAMADA LTD.
  Company Number: CN-KAMADA LTD.-2025KAM00003

PATIENT
  Age: 8 Month
  Sex: Female

DRUGS (2)
  1. HEPATITIS B IMMUNE GLOBULIN [Suspect]
     Active Substance: HUMAN HEPATITIS B VIRUS IMMUNE GLOBULIN
     Indication: Antiviral prophylaxis
  2. HEPATITIS B VIRUS VACCINE [Suspect]
     Active Substance: HEPATITIS B VIRUS VACCINE
     Indication: Antiviral prophylaxis

REACTIONS (1)
  - Drug ineffective [Recovered/Resolved]
